FAERS Safety Report 7501747-0 (Version None)
Quarter: 2011Q2

REPORT INFORMATION
  Report Type: 
  Country: None (occurrence: None)
  Receive Date: 20110523
  Receipt Date: 20110523
  Transmission Date: 20111010
  Serious: Yes (Death)
  Sender: FDA-Public Use
  Company Number: None

PATIENT
  Sex: Female

DRUGS (11)
  1. DECADRON [Concomitant]
  2. FAMOTIDINE [Concomitant]
  3. DIGOXIN [Concomitant]
  4. LISINOPRIL [Concomitant]
  5. REVLIMID [Suspect]
     Indication: MULTIPLE MYELOMA
     Dosage: 10MG QD X 21D/28D ORALLY
     Route: 048
     Dates: start: 20070401, end: 20080201
  6. REVLIMID [Suspect]
     Indication: MULTIPLE MYELOMA
     Dosage: 10MG QD X 21D/28D ORALLY
     Route: 048
     Dates: start: 20100301
  7. WARFARIN SODIUM [Concomitant]
  8. PROZAC [Concomitant]
  9. PERCOCET [Concomitant]
  10. LASIX [Concomitant]
  11. ADVAIR DISKUS 100/50 [Concomitant]

REACTIONS (2)
  - UROSEPSIS [None]
  - SEPSIS [None]
